FAERS Safety Report 7390271-4 (Version None)
Quarter: 2011Q2

REPORT INFORMATION
  Report Type: 
  Country: None (occurrence: None)
  Receive Date: 20110401
  Receipt Date: 20110328
  Transmission Date: 20111010
  Serious: Yes (Hospitalization, Other)
  Sender: FDA-Public Use
  Company Number: US-ROCHE-768130

PATIENT
  Sex: Female

DRUGS (5)
  1. ZOLEDRONIC ACID [Concomitant]
  2. ACCUPRIL [Concomitant]
  3. PAZOPANIB [Suspect]
     Route: 048
     Dates: start: 20100901, end: 20101228
  4. KLONOPIN [Suspect]
     Route: 065
  5. AVASTIN [Suspect]
     Route: 065

REACTIONS (2)
  - BLINDNESS [None]
  - POSTERIOR REVERSIBLE ENCEPHALOPATHY SYNDROME [None]
